FAERS Safety Report 4899247-X (Version None)
Quarter: 2006Q1

REPORT INFORMATION
  Report Type: 
  Country: None (occurrence: None)
  Receive Date: 20060202
  Receipt Date: 20051110
  Transmission Date: 20060701
  Serious: Yes (Death)
  Sender: FDA-Public Use
  Company Number: US-ROCHE-424354

PATIENT
  Age: 64 Year
  Sex: Male
  Weight: 108.9 kg

DRUGS (3)
  1. PEGASYS [Suspect]
     Dosage: ROUTE REPORTED AS INJECTABLE.
     Route: 050
     Dates: start: 20050716
  2. COPEGUS [Suspect]
     Route: 048
     Dates: start: 20050716
  3. LASIX [Concomitant]

REACTIONS (1)
  - HEPATIC NEOPLASM MALIGNANT [None]
